FAERS Safety Report 15734390 (Version 1)
Quarter: 2018Q4

REPORT INFORMATION
  Report Type: Spontaneous
  Country: IN (occurrence: IN)
  Receive Date: 20181218
  Receipt Date: 20181218
  Transmission Date: 20190205
  Serious: Yes (Other)
  Sender: FDA-Public Use
  Company Number: IN-PFIZER INC-2017157228

PATIENT
  Age: 70 Year
  Sex: Female

DRUGS (3)
  1. PALBACE [Suspect]
     Active Substance: PALBOCICLIB
     Indication: BREAST CANCER METASTATIC
     Dosage: 125 MG, UNK
     Dates: start: 20170317, end: 20170406
  2. PALBACE [Suspect]
     Active Substance: PALBOCICLIB
     Dosage: 125 MG, 1X/DAY
     Route: 048
  3. LETROZOLE. [Concomitant]
     Active Substance: LETROZOLE
     Dosage: 2.5 MG, UNK
     Dates: start: 20170317

REACTIONS (7)
  - Insomnia [Unknown]
  - Haemoglobin decreased [Unknown]
  - Nausea [Unknown]
  - Decreased appetite [Unknown]
  - Pulmonary oedema [Unknown]
  - Dysgeusia [Unknown]
  - Mood swings [Unknown]
